FAERS Safety Report 16297215 (Version 2)
Quarter: 2019Q3

REPORT INFORMATION
  Report Type: Spontaneous
  Country: US (occurrence: US)
  Receive Date: 20190510
  Receipt Date: 20190712
  Transmission Date: 20191004
  Serious: No
  Sender: FDA-Public Use
  Company Number: US-ELI_LILLY_AND_COMPANY-US201904015911

PATIENT
  Sex: Female

DRUGS (9)
  1. HUMATROPE [Suspect]
     Active Substance: SOMATROPIN
     Indication: GROWTH HORMONE DEFICIENCY
     Dosage: 8 U, UNKNOWN
     Route: 065
     Dates: start: 1997
  2. HUMATROPE [Suspect]
     Active Substance: SOMATROPIN
     Dosage: 8 U, UNKNOWN
     Route: 065
     Dates: start: 2000
  3. MULTIVITAMINUM [Concomitant]
  4. JANUVIA [Concomitant]
     Active Substance: SITAGLIPTIN PHOSPHATE
  5. TELMISARTAN/HYDROCHLOROTHIAZIDE [Concomitant]
     Active Substance: HYDROCHLOROTHIAZIDE\TELMISARTAN
  6. ASPIRIN [ACETYLSALICYLIC ACID] [Concomitant]
     Active Substance: ASPIRIN
  7. ATORVASTATIN [Concomitant]
     Active Substance: ATORVASTATIN
  8. METFORMIN [Concomitant]
     Active Substance: METFORMIN HYDROCHLORIDE
  9. SYNTHROID [Concomitant]
     Active Substance: LEVOTHYROXINE SODIUM
     Indication: HYPOTHYROIDISM

REACTIONS (9)
  - Hypopituitarism [Not Recovered/Not Resolved]
  - Headache [Unknown]
  - Type 2 diabetes mellitus [Not Recovered/Not Resolved]
  - Blood glucose decreased [Unknown]
  - Irritability [Not Recovered/Not Resolved]
  - Memory impairment [Unknown]
  - Alopecia [Not Recovered/Not Resolved]
  - Skin exfoliation [Unknown]
  - Insomnia [Not Recovered/Not Resolved]

NARRATIVE: CASE EVENT DATE: 1999
